FAERS Safety Report 25829465 (Version 4)
Quarter: 2025Q4

REPORT INFORMATION
  Report Type: Spontaneous
  Country: US (occurrence: US)
  Receive Date: 20250922
  Receipt Date: 20251229
  Transmission Date: 20260119
  Serious: Yes (Hospitalization, Other)
  Sender: MDD OPERATIONS
  Company Number: US-MDD US Operations-MDD202509-003679

PATIENT
  Age: 63 Year
  Sex: Female

DRUGS (4)
  1. APOKYN [Suspect]
     Active Substance: APOMORPHINE HYDROCHLORIDE
     Indication: Parkinson^s disease
     Dosage: 0.3MG TWO TIMES A DAY
  2. ONAPGO [Suspect]
     Active Substance: APOMORPHINE HYDROCHLORIDE
     Indication: Parkinson^s disease
     Dosage: 3.0MG PER HOUR, FOR 16 HOURS
  3. ONAPGO [Suspect]
     Active Substance: APOMORPHINE HYDROCHLORIDE
     Indication: Dyskinesia
     Dosage: 3.5MG PER HOUR
     Dates: start: 202512
  4. ONAPGO [Suspect]
     Active Substance: APOMORPHINE HYDROCHLORIDE
     Indication: On and off phenomenon
     Dosage: 98 MG FOR 16 HOURS OR LESS EACH DAY, CONTINUOUS DOSE (MAX 6MG/HOUR OR 98MG/DAY) AND EXTRA DOSES (MAX
     Dates: start: 202510

REACTIONS (8)
  - Gastrointestinal obstruction [Unknown]
  - Cholecystectomy [Unknown]
  - Dystonia [Unknown]
  - Dermatitis [Unknown]
  - Limb discomfort [Unknown]
  - Limb discomfort [Unknown]
  - Infusion site pruritus [Unknown]
  - Injection site erythema [Unknown]

NARRATIVE: CASE EVENT DATE: 20250101
